FAERS Safety Report 5680920-0 (Version None)
Quarter: 2008Q1

REPORT INFORMATION
  Report Type: 
  Country: None (occurrence: None)
  Receive Date: 20080326
  Receipt Date: 20080314
  Transmission Date: 20080703
  Serious: Yes (Other)
  Sender: FDA-Public Use
  Company Number: US-PFIZER INC-2008013818

PATIENT
  Sex: Female
  Weight: 57.2 kg

DRUGS (3)
  1. LYRICA [Suspect]
     Indication: PAIN IN EXTREMITY
  2. COZAAR [Concomitant]
  3. VERAPAMIL [Concomitant]

REACTIONS (4)
  - CHEST DISCOMFORT [None]
  - ECCHYMOSIS [None]
  - MUSCULOSKELETAL PAIN [None]
  - PAIN IN EXTREMITY [None]
